FAERS Safety Report 7002174-5 (Version None)
Quarter: 2010Q3

REPORT INFORMATION
  Report Type: 
  Country: None (occurrence: None)
  Receive Date: 20100917
  Receipt Date: 20100917
  Transmission Date: 20110219
  Serious: Yes (Other)
  Sender: FDA-Public Use
  Company Number: None

PATIENT
  Age: 56 Year
  Sex: Female
  Weight: 76.2043 kg

DRUGS (1)
  1. NASONEX [Suspect]
     Indication: RHINORRHOEA
     Dosage: 12 SPRAYS EACH NOSTRIL DAILY
     Dates: start: 20100812, end: 20100819

REACTIONS (10)
  - ANOSMIA [None]
  - ASTHENIA [None]
  - BLISTER [None]
  - ERYTHEMA [None]
  - FATIGUE [None]
  - IMPAIRED WORK ABILITY [None]
  - INFLAMMATION [None]
  - INSOMNIA [None]
  - RHINORRHOEA [None]
  - SWELLING FACE [None]
